FAERS Safety Report 25793651 (Version 3)
Quarter: 2025Q4

REPORT INFORMATION
  Report Type: Spontaneous
  Country: JP (occurrence: JP)
  Receive Date: 20250912
  Receipt Date: 20251017
  Transmission Date: 20260118
  Serious: Yes (Death)
  Sender: SANOFI AVENTIS
  Company Number: JP-SA-2025SA219850

PATIENT
  Age: 77 Year
  Sex: Female

DRUGS (5)
  1. SOLIQUA 100/33 [Suspect]
     Active Substance: INSULIN GLARGINE\LIXISENATIDE
     Indication: Diabetes mellitus
     Dosage: QD, 3 DOSES IN THE EVENING
     Route: 058
     Dates: start: 20240129, end: 20250612
  2. INSULIN LISPRO [Suspect]
     Active Substance: INSULIN LISPRO
     Indication: Diabetes mellitus
     Dosage: BID, AT 1 UNIT IN THE MORNING, 2 UNITS AT NOON
     Route: 058
     Dates: start: 20230802, end: 20250612
  3. ROSUVASTATIN FELDSENF [Concomitant]
     Indication: Dyslipidaemia
     Dosage: 2.5 MG, QD
     Route: 048
     Dates: start: 20130902, end: 20250612
  4. ELDECALCITOL [Concomitant]
     Active Substance: ELDECALCITOL
     Indication: Osteoporosis
     Dosage: 0.75 UG, QD
     Route: 048
     Dates: start: 20221005, end: 20250612
  5. LOSARTAN POTASSIUM [Concomitant]
     Active Substance: LOSARTAN POTASSIUM
     Indication: Hypertension
     Dosage: 50 MG, QD
     Route: 048
     Dates: start: 20150316, end: 20250612

REACTIONS (2)
  - Vomiting [Fatal]
  - Inappropriate schedule of product administration [Unknown]

NARRATIVE: CASE EVENT DATE: 20240129
